FAERS Safety Report 19077573 (Version 1)
Quarter: 2021Q1

REPORT INFORMATION
  Report Type: Other
  Country: US (occurrence: US)
  Receive Date: 20210331
  Receipt Date: 20210331
  Transmission Date: 20210420
  Serious: Yes (Other)
  Sender: FDA-Public Use
  Company Number: US-ROCHE-2549626

PATIENT
  Sex: Female
  Weight: 109.77 kg

DRUGS (3)
  1. ACTEMRA [Suspect]
     Active Substance: TOCILIZUMAB
     Indication: IRIDOCYCLITIS
     Dosage: INJECT 162MG SUBCUTANEOUSLY EVERY 7 DAY(S)
     Route: 058
  2. ACTEMRA [Suspect]
     Active Substance: TOCILIZUMAB
  3. ACTEMRA [Suspect]
     Active Substance: TOCILIZUMAB

REACTIONS (4)
  - Off label use [Unknown]
  - Alopecia [Unknown]
  - Infection [Unknown]
  - Seizure [Unknown]
